FAERS Safety Report 7287638-1 (Version None)
Quarter: 2011Q1

REPORT INFORMATION
  Report Type: 
  Country: None (occurrence: None)
  Receive Date: 20110208
  Receipt Date: 20110208
  Transmission Date: 20110831
  Serious: Yes (Other)
  Sender: FDA-Public Use
  Company Number: None

PATIENT
  Age: 40 Year
  Sex: Female
  Weight: 79.3795 kg

DRUGS (2)
  1. CELEBREX [Suspect]
     Indication: SWELLING
     Dosage: 200MG BID PO
     Route: 048
     Dates: start: 20110131, end: 20110207
  2. CELEBREX [Suspect]
     Indication: LIPOSUCTION
     Dosage: 200MG BID PO
     Route: 048
     Dates: start: 20110131, end: 20110207

REACTIONS (6)
  - VULVAL DISORDER [None]
  - ORAL DISORDER [None]
  - PAIN [None]
  - URETHRAL DISORDER [None]
  - PRURITUS [None]
  - VAGINAL LESION [None]
